FAERS Safety Report 13030252 (Version 1)
Quarter: 2016Q4

REPORT INFORMATION
  Report Type: Spontaneous
  Country: DE (occurrence: DE)
  Receive Date: 20161215
  Receipt Date: 20161215
  Transmission Date: 20170207
  Serious: Yes (Other)
  Sender: FDA-Public Use
  Company Number: DE-CLINIGEN GROUP PLC/ CLINIGEN HEALTHCARE LTD-DE-CLGN-16-00447

PATIENT

DRUGS (3)
  1. DACARBAZINE. [Concomitant]
     Active Substance: DACARBAZINE
     Indication: SOFT TISSUE SARCOMA
  2. DEXRAZOXANE HYDROCHLORIDE. [Suspect]
     Active Substance: DEXRAZOXANE HYDROCHLORIDE
     Indication: SOFT TISSUE SARCOMA
  3. DOXORUBICIN [Suspect]
     Active Substance: DOXORUBICIN
     Indication: SOFT TISSUE SARCOMA

REACTIONS (3)
  - Off label use [Unknown]
  - Ejection fraction decreased [Recovering/Resolving]
  - Cardiotoxicity [Recovered/Resolved]
